FAERS Safety Report 22524587 (Version 1)
Quarter: 2023Q2

REPORT INFORMATION
  Report Type: Spontaneous
  Country: KR (occurrence: KR)
  Receive Date: 20230606
  Receipt Date: 20230606
  Transmission Date: 20230722
  Serious: Yes (Death, Hospitalization, Other)
  Sender: FDA-Public Use
  Company Number: KR-ORGANON-O2305KOR003112

PATIENT
  Age: 79 Year
  Sex: Male
  Weight: 66 kg

DRUGS (7)
  1. COZAAR [Suspect]
     Active Substance: LOSARTAN POTASSIUM
     Indication: Hypertension
     Dosage: 50 MILLIGRAM, ONCE IN A DAY
     Dates: end: 20200525
  2. AMBROXOL ACEFYLLINATE [Concomitant]
     Active Substance: AMBROXOL ACEFYLLINATE
     Indication: Prophylaxis
     Dosage: 400 MILLIGRAM, ONCE IN A DAY
     Dates: start: 20200420, end: 20200612
  3. MEGESTROL ACETATE [Concomitant]
     Active Substance: MEGESTROL ACETATE
     Indication: Prophylaxis
     Dosage: 5 MILLILITER, ONCE IN A DAY
     Dates: start: 20200420, end: 20200524
  4. CODEINE PHOSPHATE [Concomitant]
     Active Substance: CODEINE PHOSPHATE
     Indication: Prophylaxis
     Dosage: 180 MILLIGRAM, ONCE IN A DAY
     Dates: start: 20200511
  5. DOXOFYLLINE [Concomitant]
     Active Substance: DOXOFYLLINE
     Indication: Prophylaxis
     Dosage: 2 FORMULATION, ONCE IN A DAY
     Dates: start: 20200420
  6. THEOBROMINE [Concomitant]
     Active Substance: THEOBROMINE
     Indication: Prophylaxis
     Dosage: 2 FORMULATION, ONCE IN A DAY
     Dates: start: 20200511, end: 20200524
  7. ATORVASTATIN CALCIUM [Concomitant]
     Active Substance: ATORVASTATIN CALCIUM
     Indication: Dyslipidaemia
     Dosage: 1 FORMULATION, ONCE IN A DAY
     Dates: start: 20200525, end: 20200612

REACTIONS (3)
  - Pneumonia [Fatal]
  - Acute myocardial infarction [Fatal]
  - Decreased appetite [Not Recovered/Not Resolved]

NARRATIVE: CASE EVENT DATE: 20200523
